FAERS Safety Report 6239496-1 (Version None)
Quarter: 2009Q2

REPORT INFORMATION
  Report Type: 
  Country: None (occurrence: None)
  Receive Date: 20090622
  Receipt Date: 20090611
  Transmission Date: 20091009
  Serious: Yes (Death, Hospitalization)
  Sender: FDA-Public Use
  Company Number: AU-AVENTIS-200912202GDDC

PATIENT
  Age: 81 Year
  Sex: Male

DRUGS (7)
  1. ARAVA [Suspect]
     Dates: start: 20080825
  2. PREDNISONE [Concomitant]
  3. FRUSEMIDE [Concomitant]
     Dosage: DOSE: UNK
  4. ACETAMINOPHEN [Concomitant]
  5. OXYGEN THERAPY [Concomitant]
     Indication: ASBESTOSIS
  6. METFORMIN HCL [Concomitant]
  7. ASPIRIN [Concomitant]

REACTIONS (5)
  - ANOREXIA [None]
  - ASBESTOSIS [None]
  - CARDIOMYOPATHY [None]
  - DYSGEUSIA [None]
  - WEIGHT DECREASED [None]
